FAERS Safety Report 8992190 (Version 3)
Quarter: 2013Q3

REPORT INFORMATION
  Report Type: Report from Study
  Country: BR (occurrence: BR)
  Receive Date: 20121231
  Receipt Date: 20130731
  Transmission Date: 20140515
  Serious: Yes (Hospitalization)
  Sender: FDA-Public Use
  Company Number: BR-ABBOTT-12P-020-1028210-00

PATIENT
  Age: 66 Year
  Sex: Female

DRUGS (1)
  1. HUMIRA [Suspect]
     Indication: RHEUMATOID ARTHRITIS
     Route: 058

REACTIONS (7)
  - Pyrexia [Not Recovered/Not Resolved]
  - Feeling abnormal [Unknown]
  - Abdominal distension [Recovered/Resolved]
  - Unevaluable event [Not Recovered/Not Resolved]
  - Dysuria [Recovered/Resolved]
  - Local swelling [Recovered/Resolved]
  - Local swelling [Recovered/Resolved]
